FAERS Safety Report 21161902 (Version 1)
Quarter: 2022Q3

REPORT INFORMATION
  Report Type: Spontaneous
  Country: US (occurrence: US)
  Receive Date: 20220802
  Receipt Date: 20220802
  Transmission Date: 20221026
  Serious: Yes (Other)
  Sender: FDA-Public Use
  Company Number: US-JNJFOC-20220756153

PATIENT

DRUGS (1)
  1. WOMENS ROGAINE UNSCENTED [Suspect]
     Active Substance: MINOXIDIL
     Indication: Alopecia
     Dosage: TWICE DAILY?USED IT FOR THIRTY THREE YEARS
     Route: 061

REACTIONS (4)
  - Pituitary tumour [Recovered/Resolved]
  - Chronic kidney disease [Recovered/Resolved]
  - Hypertension [Recovered/Resolved]
  - Alopecia [Recovered/Resolved]

NARRATIVE: CASE EVENT DATE: 20211201
